FAERS Safety Report 22835902 (Version 3)
Quarter: 2024Q1

REPORT INFORMATION
  Report Type: Report from Study
  Country: NL (occurrence: NL)
  Receive Date: 20230818
  Receipt Date: 20240103
  Transmission Date: 20240410
  Serious: Yes (Hospitalization)
  Sender: FDA-Public Use
  Company Number: NL-ABBVIE-5371259

PATIENT
  Sex: Female

DRUGS (6)
  1. CARBIDOPA\LEVODOPA [Suspect]
     Active Substance: CARBIDOPA\LEVODOPA
     Indication: Parkinson^s disease
     Dosage: MD: 6.0 ML, CD: 1.8 ML/H, ED: 1.5 ML?REMAINS AT 16 HOURS
     Route: 050
     Dates: start: 20230815, end: 20231016
  2. CARBIDOPA\LEVODOPA [Suspect]
     Active Substance: CARBIDOPA\LEVODOPA
     Dosage: MD: 6.0 ML, CD: 1.8 ML/H, ED: 1.5 ML
     Route: 050
     Dates: start: 202312
  3. CARBIDOPA\LEVODOPA [Suspect]
     Active Substance: CARBIDOPA\LEVODOPA
     Dosage: MD: 7.0 ML, CD: 2.1 ML/H, ED: 1.5 ML?REMAINS AT 16 HOURS
     Route: 050
     Dates: start: 20230614, end: 20230815
  4. CARBIDOPA\LEVODOPA [Suspect]
     Active Substance: CARBIDOPA\LEVODOPA
     Dosage: REMAINS AT 16 HOURS
     Route: 050
     Dates: start: 20190204
  5. CARBIDOPA\LEVODOPA [Suspect]
     Active Substance: CARBIDOPA\LEVODOPA
     Dosage: MD: 6.0 ML, CD: 1.8 ML/H, ED: 1.5 ML?REMAINS AT 16 HOURS?DOSE REDUCED
     Route: 050
     Dates: start: 202310, end: 20231227
  6. CARBIDOPA\LEVODOPA [Concomitant]
     Active Substance: CARBIDOPA\LEVODOPA
     Indication: Parkinson^s disease

REACTIONS (18)
  - Hip fracture [Recovered/Resolved]
  - Tremor [Recovering/Resolving]
  - Dyskinesia [Recovering/Resolving]
  - On and off phenomenon [Not Recovered/Not Resolved]
  - Stoma site irritation [Not Recovered/Not Resolved]
  - Fine motor skill dysfunction [Not Recovered/Not Resolved]
  - Hallucination [Recovering/Resolving]
  - Stoma site discharge [Not Recovered/Not Resolved]
  - Gait disturbance [Not Recovered/Not Resolved]
  - Cognitive disorder [Not Recovered/Not Resolved]
  - Asthenia [Not Recovered/Not Resolved]
  - Weight increased [Not Recovered/Not Resolved]
  - Fibroma [Not Recovered/Not Resolved]
  - Fatigue [Not Recovered/Not Resolved]
  - Constipation [Not Recovered/Not Resolved]
  - Stoma site erythema [Not Recovered/Not Resolved]
  - Loss of personal independence in daily activities [Not Recovered/Not Resolved]
  - Anxiety [Unknown]
